FAERS Safety Report 5978230-7 (Version None)
Quarter: 2008Q4

REPORT INFORMATION
  Report Type: 
  Country: None (occurrence: None)
  Receive Date: 20081204
  Receipt Date: 20081124
  Transmission Date: 20090506
  Serious: Yes (Disabling, Other)
  Sender: FDA-Public Use
  Company Number: BR-BAYER-200821491LA

PATIENT
  Age: 45 Year
  Sex: Female
  Weight: 60 kg

DRUGS (1)
  1. MIRENA [Suspect]
     Indication: CONTRACEPTION
     Route: 015
     Dates: start: 20050627

REACTIONS (4)
  - DEAFNESS [None]
  - EAR DISCOMFORT [None]
  - ENDOLYMPHATIC HYDROPS [None]
  - INNER EAR OPERATION [None]
